FAERS Safety Report 8830942 (Version 2)
Quarter: 2012Q4

REPORT INFORMATION
  Report Type: Report from Study
  Country: FR (occurrence: FR)
  Receive Date: 20121009
  Receipt Date: 20121018
  Transmission Date: 20130627
  Serious: Yes (Death, Life-Threatening, Hospitalization, Other)
  Sender: FDA-Public Use
  Company Number: FR-MPIJNJ-2012-06889

PATIENT
  Age: 82 Year
  Sex: Female
  Weight: 56 kg

DRUGS (25)
  1. VELCADE [Suspect]
     Indication: MULTIPLE MYELOMA
     Dosage: 2.1 mg, UNK
     Route: 058
     Dates: start: 20120522, end: 20120529
  2. UNSPECIFIED INGREDIENT [Suspect]
     Indication: MULTIPLE MYELOMA
     Dosage: 12 mg, UNK
     Route: 048
     Dates: start: 20120521, end: 20120531
  3. DEXAMETHASONE [Suspect]
     Indication: MULTIPLE MYELOMA
     Dosage: 20 mg, UNK
     Route: 048
     Dates: start: 20120522, end: 20120529
  4. CEFTRIAXONE [Concomitant]
  5. FENTANYL [Concomitant]
     Indication: PAIN PROPHYLAXIS
  6. FUROSEMIDE [Concomitant]
     Indication: PROPHYLAXIS
  7. ATRACURIUM [Concomitant]
     Indication: ANAESTHESIA
  8. PRIMPERAN                          /00041901/ [Concomitant]
     Indication: NAUSEA
  9. KARDEGIC                           /00002703/ [Concomitant]
     Indication: PROPHYLAXIS
  10. OXYGEN [Concomitant]
  11. NORADRENALINE                      /00127501/ [Concomitant]
  12. BURINEX [Concomitant]
     Indication: PROPHYLAXIS
  13. HYDROCORTISONE [Concomitant]
     Indication: PROPHYLAXIS
  14. MORPHINE [Concomitant]
  15. MIDAZOLAM [Concomitant]
  16. ZOPHREN                            /00955301/ [Concomitant]
  17. TOPALGIC                           /00599202/ [Concomitant]
  18. PERFALGAN [Concomitant]
  19. TRANXENE [Concomitant]
     Indication: FEELING OF RELAXATION
  20. ZOPHREN                            /00955301/ [Concomitant]
  21. ZELITREX                           /01269701/ [Concomitant]
     Indication: PROPHYLAXIS
  22. CRESTOR                            /01588601/ [Concomitant]
     Indication: HYPERCHOLESTEROLAEMIA
  23. IMPORTAL [Concomitant]
     Indication: CONSTIPATION
  24. TOPALGIC LP [Concomitant]
     Indication: BACK PAIN
  25. OXYCONTIN [Concomitant]
     Indication: BACK PAIN

REACTIONS (5)
  - Dyspnoea [Fatal]
  - Hypotension [Fatal]
  - Thrombocytopenia [Recovered/Resolved]
  - Electrocardiogram QT prolonged [Not Recovered/Not Resolved]
  - Back pain [Not Recovered/Not Resolved]
